FAERS Safety Report 11324150 (Version 1)
Quarter: 2015Q3

REPORT INFORMATION
  Report Type: Spontaneous
  Country: CH (occurrence: CH)
  Receive Date: 20150730
  Receipt Date: 20150730
  Transmission Date: 20151125
  Serious: Yes (Hospitalization, Other)
  Sender: FDA-Public Use
  Company Number: CH-PFIZER INC-2015247994

PATIENT
  Age: 62 Year
  Sex: Male

DRUGS (1)
  1. CHAMPIX [Suspect]
     Active Substance: VARENICLINE TARTRATE
     Indication: SMOKING CESSATION THERAPY
     Dosage: 0.5 MG 1X/DAY
     Route: 048
     Dates: start: 20150124, end: 20150206

REACTIONS (8)
  - Generalised tonic-clonic seizure [Recovered/Resolved]
  - Pulse absent [Unknown]
  - Agitation [Unknown]
  - Fatigue [Unknown]
  - Metabolic acidosis [Unknown]
  - Confusional state [Recovered/Resolved]
  - Blood lactic acid increased [Unknown]
  - Sedation [Unknown]

NARRATIVE: CASE EVENT DATE: 201502
